FAERS Safety Report 7361588-4 (Version None)
Quarter: 2011Q1

REPORT INFORMATION
  Report Type: 
  Country: None (occurrence: None)
  Receive Date: 20110318
  Receipt Date: 20110308
  Transmission Date: 20110831
  Serious: Yes (Death, Hospitalization)
  Sender: FDA-Public Use
  Company Number: CH-PFIZER INC-2011057618

PATIENT
  Age: 45 Day
  Sex: Male

DRUGS (6)
  1. ASPEGIC 325 [Concomitant]
     Dosage: UNK
     Dates: start: 20101123, end: 20101124
  2. ESIDRIX [Concomitant]
     Dosage: UNK
     Dates: end: 20101124
  3. ALDACTONE [Concomitant]
     Dosage: UNK
     Dates: end: 20101124
  4. CORDARONE [Suspect]
     Indication: SUPRAVENTRICULAR TACHYCARDIA
     Dosage: UNK
     Route: 042
     Dates: start: 20101106, end: 20101108
  5. CORDARONE [Suspect]
     Indication: SUPRAVENTRICULAR TACHYCARDIA
     Dosage: 40 MG, 1X/DAY
     Route: 048
     Dates: start: 20101109, end: 20101124
  6. CHLORALDURAT [Concomitant]
     Dosage: UNK
     Dates: end: 20101124

REACTIONS (4)
  - HYPOTHYROIDISM [None]
  - ARRHYTHMIA [None]
  - BRADYCARDIA [None]
  - CIRCULATORY COLLAPSE [None]
